FAERS Safety Report 15778551 (Version 3)
Quarter: 2019Q1

REPORT INFORMATION
  Report Type: Report from Study
  Country: CA (occurrence: CA)
  Receive Date: 20181231
  Receipt Date: 20190219
  Transmission Date: 20190417
  Serious: Yes (Hospitalization)
  Sender: FDA-Public Use
  Company Number: CA-ACTELION-A-US2018-184230

PATIENT
  Age: 14 Year
  Sex: Female
  Weight: 6.35 kg

DRUGS (6)
  1. OPSUMIT [Suspect]
     Active Substance: MACITENTAN
     Indication: PULMONARY ARTERIAL HYPERTENSION
     Dosage: 10 MG, QD
     Route: 048
  2. OMEGA 3 [Concomitant]
     Active Substance: OMEGA-3 FATTY ACIDS
  3. SPIRONOLACTONE. [Concomitant]
     Active Substance: SPIRONOLACTONE
  4. TADALAFIL. [Concomitant]
     Active Substance: TADALAFIL
  5. HYDROCHLOROTHIAZIDE. [Concomitant]
     Active Substance: HYDROCHLOROTHIAZIDE
  6. MULTIVIT [Concomitant]
     Active Substance: VITAMINS

REACTIONS (6)
  - Pericardial effusion [Unknown]
  - Vocal cord dysfunction [Unknown]
  - Oxygen saturation decreased [Not Recovered/Not Resolved]
  - Speech disorder [Unknown]
  - Aphonia [Recovered/Resolved]
  - Aphasia [Recovered/Resolved]
